FAERS Safety Report 16419471 (Version 1)
Quarter: 2019Q2

REPORT INFORMATION
  Report Type: Other
  Country: CN (occurrence: CN)
  Receive Date: 20190612
  Receipt Date: 20190612
  Transmission Date: 20190711
  Serious: Yes (Hospitalization, Other)
  Sender: FDA-Public Use
  Company Number: CN-VISTAPHARM, INC.-VER201906-000356

PATIENT
  Age: 48 Year
  Sex: Female

DRUGS (7)
  1. MORPHINE [Suspect]
     Active Substance: MORPHINE
     Indication: CANCER PAIN
     Dosage: 1 MG/ML (IN NORMAL SALINE)
     Route: 037
  2. MORPHINE [Suspect]
     Active Substance: MORPHINE
     Dosage: 1.5 MG PER DAY AT FIRST AND THE DOSAGE WAS GRADUALLY INCREASED (TOTAL DOSE: 16.2 MG PER DAY, IN NORM
     Route: 037
  3. MORPHINE [Suspect]
     Active Substance: MORPHINE
     Dosage: 3 MG/ML (IN NORMAL SALINE)
     Route: 037
  4. FENTANYL. [Concomitant]
     Active Substance: FENTANYL
     Indication: CANCER PAIN
     Dosage: TRANSDERMAL PATCH 16.8 MCG Q72HOURS
     Route: 062
  5. GABAPENTIN. [Concomitant]
     Active Substance: GABAPENTIN
     Dosage: 600 MG, TID
  6. CELECOXIB. [Concomitant]
     Active Substance: CELECOXIB
     Dosage: 200 MG, BID
  7. ROPIVACAINE. [Suspect]
     Active Substance: ROPIVACAINE HYDROCHLORIDE
     Indication: CANCER PAIN
     Dosage: 1.25 MG/ML (IN NORMAL SALINE)
     Route: 037

REACTIONS (2)
  - Drug interaction [Recovered/Resolved]
  - Myoclonus [Recovered/Resolved]
